FAERS Safety Report 18304273 (Version 1)
Quarter: 2020Q3

REPORT INFORMATION
  Report Type: Spontaneous
  Country: CN (occurrence: CN)
  Receive Date: 20200924
  Receipt Date: 20200924
  Transmission Date: 20201103
  Serious: Yes (Hospitalization)
  Sender: FDA-Public Use
  Company Number: CN-BAXTER-2020BAX019443

PATIENT
  Age: 70 Year
  Sex: Male
  Weight: 60 kg

DRUGS (11)
  1. MEILUOHUA [Suspect]
     Active Substance: RITUXIMAB
     Dosage: D1, ROUTE: INTRA?PUMP INJECTION, 0.9% SODIUM CHLORIDE 200ML + MEILUOHUA 600MG (500MG+100MG), ELECTRO
     Route: 050
     Dates: start: 20200824, end: 20200824
  2. 0.9% SODIUM CHLORIDE INJECTION [Suspect]
     Active Substance: SODIUM CHLORIDE
     Dosage: D1, ROUTE: INTRA?PUMP INJECTION, 0.9% SODIUM CHLORIDE 100ML + MEILUOHUA 100MG, 7.5ML/HOUR FOR THE FI
     Route: 050
     Dates: start: 20200824, end: 20200824
  3. 0.9% SODIUM CHLORIDE INJECTION [Suspect]
     Active Substance: SODIUM CHLORIDE
     Dosage: D1, ROUTE: INTRA?PUMP INJECTION, 0.9% SODIUM CHLORIDE 200ML + MEILUOHUA 600MG (500MG+100MG), ELECTRO
     Route: 050
     Dates: start: 20200824, end: 20200824
  4. LIBAODUO [Suspect]
     Active Substance: DOXORUBICIN HYDROCHLORIDE
     Indication: BREAST CANCER FEMALE
     Dosage: DAY 2
     Route: 041
     Dates: start: 20200825, end: 20200825
  5. 0.9% SODIUM CHLORIDE INJECTION [Suspect]
     Active Substance: SODIUM CHLORIDE
     Dosage: D2, 0.9% SODIUM CHLORIDE 30ML + XIAIKE 4MG, D2
     Route: 041
     Dates: start: 20200825, end: 20200825
  6. MEILUOHUA [Suspect]
     Active Substance: RITUXIMAB
     Indication: BREAST CANCER FEMALE
     Dosage: D1, ROUTE: INTRA?PUMP INJECTION, 0.9% SODIUM CHLORIDE 100ML + MEILUOHUA 100MG, 7.5ML/HOUR FOR THE FI
     Route: 050
     Dates: start: 20200824, end: 20200824
  7. 0.9% SODIUM CHLORIDE INJECTION [Suspect]
     Active Substance: SODIUM CHLORIDE
     Indication: MEDICATION DILUTION
     Dosage: DAY 2, 0.9% SODIUM CHLORIDE 100 ML + ENDOXAN 1290 MG
     Route: 041
     Dates: start: 20200825, end: 20200825
  8. MEILUOHUA [Suspect]
     Active Substance: RITUXIMAB
     Dosage: D1, ROUTE: INTRA?PUMP INJECTION, 0.9% SODIUM CHLORIDE 200ML + MEILUOHUA 600MG (500MG+100MG), ELECTRO
     Route: 050
     Dates: start: 20200824, end: 20200824
  9. PREDNISONE ACETATE [Suspect]
     Active Substance: PREDNISONE ACETATE
     Indication: BREAST CANCER FEMALE
     Dosage: DOSAGE FORM: TABLETS, DAY 2 TO 6
     Route: 048
     Dates: start: 20200825, end: 20200829
  10. XIAIKE [Suspect]
     Active Substance: VINDESINE
     Indication: BREAST CANCER FEMALE
     Dosage: D2, 0.9% SODIUM CHLORIDE 30ML + XIAIKE 4MG
     Route: 041
     Dates: start: 20200825, end: 20200825
  11. ENDOXAN [Suspect]
     Active Substance: CYCLOPHOSPHAMIDE
     Indication: BREAST CANCER FEMALE
     Dosage: DAY 2, 0.9% SODIUM CHLORIDE 100 ML + ENDOXAN 1290 MG
     Route: 041
     Dates: start: 20200825, end: 20200825

REACTIONS (1)
  - Myelosuppression [Recovering/Resolving]

NARRATIVE: CASE EVENT DATE: 20200902
